FAERS Safety Report 5269716-1 (Version None)
Quarter: 2007Q1

REPORT INFORMATION
  Report Type: 
  Country: None (occurrence: None)
  Receive Date: 20070320
  Receipt Date: 20070306
  Transmission Date: 20070707
  Serious: Yes (Hospitalization, Other)
  Sender: FDA-Public Use
  Company Number: US-ELI_LILLY_AND_COMPANY-US200702000240

PATIENT
  Age: 75 Year
  Sex: Female

DRUGS (1)
  1. FORTEO [Suspect]
     Indication: OSTEOPOROSIS
     Dates: start: 20050401

REACTIONS (11)
  - BLOOD PRESSURE DECREASED [None]
  - DEHYDRATION [None]
  - FAECAL INCONTINENCE [None]
  - FALL [None]
  - LOSS OF CONSCIOUSNESS [None]
  - NAUSEA [None]
  - PAIN [None]
  - PANCREATIC DISORDER [None]
  - SKELETAL INJURY [None]
  - STOMACH DISCOMFORT [None]
  - SYNCOPE VASOVAGAL [None]
